FAERS Safety Report 4938432-5 (Version None)
Quarter: 2006Q1

REPORT INFORMATION
  Report Type: 
  Country: None (occurrence: None)
  Receive Date: 20060302
  Receipt Date: 20060215
  Transmission Date: 20060701
  Serious: Yes (Life-Threatening, Hospitalization)
  Sender: FDA-Public Use
  Company Number: 2006EU000443

PATIENT
  Sex: Female
  Weight: 93 kg

DRUGS (1)
  1. VESIKUR(SOLIFENACIN) TABLET, 5MG [Suspect]
     Indication: URINARY INCONTINENCE
     Dosage: 5 MG, UID/QD, ORAL
     Route: 048

REACTIONS (11)
  - CARDIAC FAILURE [None]
  - DIABETES MELLITUS [None]
  - DRUG INTOLERANCE [None]
  - HYPERTENSION [None]
  - INFARCTION [None]
  - POLYNEUROPATHY [None]
  - POST PROCEDURAL COMPLICATION [None]
  - POST PROCEDURAL HAEMATOMA [None]
  - SICK SINUS SYNDROME [None]
  - SPINAL DISORDER [None]
  - TORSADE DE POINTES [None]
